FAERS Safety Report 5338774-8 (Version None)
Quarter: 2007Q2

REPORT INFORMATION
  Report Type: 
  Country: None (occurrence: None)
  Receive Date: 20070322
  Receipt Date: 20060531
  Transmission Date: 20071010
  Serious: Yes (Other)
  Sender: FDA-Public Use
  Company Number: 200610931BCC

PATIENT
  Age: 36 Year
  Sex: Female

DRUGS (1)
  1. ALEVE (CAPLET) [Suspect]
     Indication: STOMACH DISCOMFORT
     Dosage: 4400 MG, ORAL
     Route: 048
     Dates: start: 20060301

REACTIONS (2)
  - MALAISE [None]
  - NAUSEA [None]
